FAERS Safety Report 4684882-4 (Version None)
Quarter: 2005Q2

REPORT INFORMATION
  Report Type: 
  Country: None (occurrence: None)
  Receive Date: 20050327
  Receipt Date: 20050329
  Transmission Date: 20051028
  Serious: No
  Sender: FDA-Public Use
  Company Number: PHEH2005US03728

PATIENT
  Age: 46 Year
  Sex: Female

DRUGS (2)
  1. ZELNORM [Suspect]
     Indication: CONSTIPATION
     Dosage: 6 MG, QD, ORAL
     Route: 048
     Dates: start: 20041101
  2. ZELNORM [Suspect]
     Indication: CONSTIPATION
     Dosage: ORAL
     Route: 048
     Dates: end: 20050327

REACTIONS (1)
  - DIARRHOEA [None]
